FAERS Safety Report 18314432 (Version 2)
Quarter: 2020Q4

REPORT INFORMATION
  Report Type: Spontaneous
  Country: US (occurrence: US)
  Receive Date: 20200925
  Receipt Date: 20201229
  Transmission Date: 20210113
  Serious: Yes (Hospitalization, Other)
  Sender: FDA-Public Use
  Company Number: US-PFIZER INC-2020368416

PATIENT
  Age: 77 Year
  Sex: Male
  Weight: 116.12 kg

DRUGS (1)
  1. XELJANZ XR [Suspect]
     Active Substance: TOFACITINIB CITRATE
     Indication: RHEUMATOID ARTHRITIS
     Dosage: 11 MG, 1X/DAY

REACTIONS (4)
  - Hypoacusis [Unknown]
  - Pneumonia [Unknown]
  - Memory impairment [Unknown]
  - Influenza [Unknown]

NARRATIVE: CASE EVENT DATE: 201911
